FAERS Safety Report 7224836-7 (Version None)
Quarter: 2011Q1

REPORT INFORMATION
  Report Type: 
  Country: None (occurrence: None)
  Receive Date: 20110113
  Receipt Date: 20101005
  Transmission Date: 20110831
  Serious: Yes (Death, Hospitalization, Other)
  Sender: FDA-Public Use
  Company Number: BR-ROCHE-718414

PATIENT
  Sex: Male
  Weight: 78 kg

DRUGS (8)
  1. RIBAVARIN [Concomitant]
  2. SIROLIMUS [Concomitant]
  3. CELLCEPT [Concomitant]
  4. PEGINTERFERON ALFA-2A [Suspect]
     Indication: HEPATITIS C
     Route: 058
     Dates: start: 20080101, end: 20080101
  5. PEGINTERFERON ALFA-2A [Suspect]
     Route: 058
     Dates: start: 20100805
  6. RIBAVARIN [Concomitant]
  7. PEGINTERFERON ALFA-2A [Suspect]
     Dosage: FORM: SYRINGE
     Route: 058
     Dates: start: 20100319, end: 20100628
  8. CELLCEPT [Concomitant]

REACTIONS (8)
  - HOSPITALISATION [None]
  - ANAEMIA [None]
  - TUBERCULOSIS [None]
  - WEIGHT DECREASED [None]
  - PYREXIA [None]
  - DEATH [None]
  - PAIN [None]
  - PNEUMONIA [None]
